FAERS Safety Report 7645028-3 (Version None)
Quarter: 2011Q3

REPORT INFORMATION
  Report Type: 
  Country: None (occurrence: None)
  Receive Date: 20110729
  Receipt Date: 20110722
  Transmission Date: 20111222
  Serious: Yes (Life-Threatening, Hospitalization)
  Sender: FDA-Public Use
  Company Number: JP-GLAXOSMITHKLINE-B0731014A

PATIENT
  Sex: Female

DRUGS (3)
  1. TYKERB [Suspect]
     Indication: BREAST CANCER
     Dosage: 1250MG PER DAY
     Route: 048
     Dates: start: 20100206
  2. CHINESE MEDICINE [Concomitant]
     Indication: PAIN MANAGEMENT
     Dosage: 7.5MG PER DAY
     Route: 048
     Dates: start: 20110610, end: 20110707
  3. TS-1 [Suspect]
     Indication: BREAST CANCER
     Dosage: 100MG PER DAY
     Route: 048
     Dates: start: 20101115, end: 20110707

REACTIONS (3)
  - PARAESTHESIA ORAL [None]
  - LEUKOPLAKIA ORAL [None]
  - INTERSTITIAL LUNG DISEASE [None]
